FAERS Safety Report 18264551 (Version 1)
Quarter: 2020Q3

REPORT INFORMATION
  Report Type: Spontaneous
  Country: CN (occurrence: CN)
  Receive Date: 20200914
  Receipt Date: 20200914
  Transmission Date: 20201103
  Serious: Yes (Other)
  Sender: FDA-Public Use
  Company Number: CN-AMNEAL PHARMACEUTICALS-2020-AMRX-02787

PATIENT
  Sex: Male

DRUGS (1)
  1. METFORMIN HYDROCHLORIDE ER [Suspect]
     Active Substance: METFORMIN HYDROCHLORIDE
     Indication: TYPE 2 DIABETES MELLITUS
     Dosage: HIGH DOSE ({3 GM/D) / MODERATE DOSE ({ 2 GM/DAY) / LOW DOSE ({1GM/D)
     Route: 065

REACTIONS (1)
  - Acidosis [Unknown]
